FAERS Safety Report 7915808-5 (Version None)
Quarter: 2011Q4

REPORT INFORMATION
  Report Type: 
  Country: None (occurrence: None)
  Receive Date: 20111115
  Receipt Date: 20111107
  Transmission Date: 20120403
  Serious: No
  Sender: FDA-Public Use
  Company Number: US-VERTEX PHARMACEUTICALS INC.-AE-2011-002458

PATIENT
  Sex: Male
  Weight: 68.1 kg

DRUGS (8)
  1. SIMVASTATIN [Concomitant]
  2. LISINOPRIL AND HYDROCHLOROTHIAZIDE [Concomitant]
  3. TYLENOL W/ CODEINE [Concomitant]
  4. METOPROLOL SUCCINATE [Concomitant]
  5. INCIVEK [Suspect]
     Indication: HEPATITIS C
     Route: 048
     Dates: start: 20110718, end: 20111013
  6. RIBAVIRIN [Concomitant]
     Indication: HEPATITIS C
     Dates: start: 20110718
  7. PROCRIT [Concomitant]
  8. PEGASYS [Concomitant]
     Indication: HEPATITIS C
     Dates: start: 20110718

REACTIONS (2)
  - SYNCOPE [None]
  - BLOOD TEST ABNORMAL [None]
